FAERS Safety Report 22389052 (Version 3)
Quarter: 2023Q2

REPORT INFORMATION
  Report Type: Spontaneous
  Country: US (occurrence: US)
  Receive Date: 20230531
  Receipt Date: 20230531
  Transmission Date: 20230721
  Serious: No
  Sender: FDA-Public Use
  Company Number: US-MYCOVIA PHARMACEUTICALS, INC.-MY-2023-000002

PATIENT
  Age: 71 Year
  Sex: Female

DRUGS (4)
  1. VIVJOA [Suspect]
     Active Substance: OTESECONAZOLE
     Indication: Vulvovaginal candidiasis
     Dosage: 150 MILLIGRAM, DAY 1 TOOK 4 CAPSULES BY MOUTH AS SINGLE DOSE
     Route: 048
     Dates: start: 20230127
  2. VIVJOA [Suspect]
     Active Substance: OTESECONAZOLE
     Dosage: 3 CAPSULES, ONE TIME DOSE
     Route: 048
  3. VIVJOA [Suspect]
     Active Substance: OTESECONAZOLE
     Dosage: UNK, STARTING DAY 14 TOOK 1 CAPSULE EVERY 7 DAYS X 11 WEEKS
     Route: 048
  4. FLUCONAZOLE [Suspect]
     Active Substance: FLUCONAZOLE
     Indication: Vulvovaginal candidiasis
     Dosage: 200 MILLIGRAM, EVERY 72 HOURS
     Route: 048
     Dates: start: 20230117

REACTIONS (5)
  - Feeling abnormal [Recovering/Resolving]
  - Diarrhoea [Recovering/Resolving]
  - Hypovitaminosis [Unknown]
  - Headache [Recovering/Resolving]
  - Nausea [Recovering/Resolving]

NARRATIVE: CASE EVENT DATE: 20230130
